FAERS Safety Report 9714177 (Version 1)
Quarter: 2013Q4

REPORT INFORMATION
  Report Type: Spontaneous
  Country: US (occurrence: US)
  Receive Date: 20131126
  Receipt Date: 20131126
  Transmission Date: 20140711
  Serious: Yes (Hospitalization)
  Sender: FDA-Public Use
  Company Number: US-GILEAD-2008-0019154

PATIENT
  Age: 51 Year
  Sex: Female
  Weight: 61.23 kg

DRUGS (9)
  1. LETAIRIS [Suspect]
     Indication: PULMONARY ARTERIAL HYPERTENSION
     Route: 048
     Dates: start: 20080502
  2. REVATIO [Concomitant]
  3. LASIX [Concomitant]
  4. ZAROXOLYN [Concomitant]
  5. PREDNISONE [Concomitant]
  6. CYTOXAN [Concomitant]
  7. SULFASALAZIN [Concomitant]
  8. CITALOPRAM [Concomitant]
  9. IRON [Concomitant]

REACTIONS (1)
  - Fluid retention [Not Recovered/Not Resolved]
